FAERS Safety Report 9063204 (Version 1)
Quarter: 2013Q1

REPORT INFORMATION
  Report Type: Report from Study
  Country: US (occurrence: US)
  Receive Date: 20130129
  Receipt Date: 20130129
  Transmission Date: 20140127
  Serious: No
  Sender: FDA-Public Use
  Company Number: US-ABBOTT-12P-163-0951968-00

PATIENT
  Age: 29 Year
  Sex: Female

DRUGS (6)
  1. HUMIRA 40 MG/0.8 ML PEN [Suspect]
     Indication: CROHN^S DISEASE
     Dosage: LOADING DOSE
     Route: 058
     Dates: start: 201206, end: 201206
  2. HUMIRA 40 MG/0.8 ML PEN [Suspect]
     Dosage: TWO WEEKS LATER
     Route: 058
     Dates: start: 201206, end: 201206
  3. HUMIRA 40 MG/0.8 ML PEN [Suspect]
     Route: 058
  4. PREDNISONE [Concomitant]
     Indication: PRODUCT USED FOR UNKNOWN INDICATION
     Dosage: 1 TABLET DAILY, PATIENT CURRENTLY TAPERING
  5. AMBIEN [Concomitant]
     Indication: INSOMNIA
  6. HYDROCODONE [Concomitant]
     Indication: PAIN
     Dosage: 5/500- 1-2 TABS EVERY 6 HOURS AS NEEDED

REACTIONS (1)
  - Injection site reaction [Not Recovered/Not Resolved]
